FAERS Safety Report 5315482-0 (Version None)
Quarter: 2007Q2

REPORT INFORMATION
  Report Type: 
  Country: None (occurrence: None)
  Receive Date: 20070503
  Receipt Date: 20070501
  Transmission Date: 20071010
  Serious: Yes (Other)
  Sender: FDA-Public Use
  Company Number: CA-BRISTOL-MYERS SQUIBB COMPANY-13747654

PATIENT
  Age: 64 Year
  Sex: Male

DRUGS (8)
  1. DASATINIB [Suspect]
     Indication: CHRONIC MYELOID LEUKAEMIA
     Route: 048
     Dates: start: 20050616
  2. GAVISCON [Concomitant]
     Dates: start: 20050922
  3. SALOFALK [Concomitant]
     Route: 054
     Dates: start: 20060821
  4. ANUSOL HC [Concomitant]
     Route: 061
     Dates: start: 20051129
  5. COLACE [Concomitant]
     Dates: start: 20051201
  6. METAMUCIL [Concomitant]
     Dates: start: 20051201
  7. HYDROCORTISONE CREAM [Concomitant]
     Dates: start: 20051201
  8. PULMICORT [Concomitant]
     Indication: COUGH
     Dates: start: 20061026, end: 20061031

REACTIONS (1)
  - LYMPHOMA [None]
